FAERS Safety Report 14929403 (Version 3)
Quarter: 2018Q2

REPORT INFORMATION
  Report Type: Report from Study
  Country: DE (occurrence: DE)
  Receive Date: 20180523
  Receipt Date: 20180618
  Transmission Date: 20180711
  Serious: Yes (Hospitalization)
  Sender: FDA-Public Use
  Company Number: DE-JNJFOC-20180517912

PATIENT
  Age: 57 Year
  Sex: Male
  Weight: 92.5 kg

DRUGS (12)
  1. OFATUMUMAB [Suspect]
     Active Substance: OFATUMUMAB
     Indication: CHRONIC LYMPHOCYTIC LEUKAEMIA
     Route: 042
     Dates: start: 20160926, end: 20180117
  2. ACICLOVIR [Concomitant]
     Active Substance: ACYCLOVIR
     Route: 048
     Dates: start: 20180524
  3. BENDAMUSTINE [Suspect]
     Active Substance: BENDAMUSTINE
     Indication: CHRONIC LYMPHOCYTIC LEUKAEMIA
     Route: 042
     Dates: start: 20160801, end: 20160830
  4. RITUXIMAB. [Concomitant]
     Active Substance: RITUXIMAB
     Route: 042
     Dates: start: 20180528, end: 20180529
  5. CYCLOPHOSPHAMIDE. [Concomitant]
     Active Substance: CYCLOPHOSPHAMIDE
     Route: 042
     Dates: start: 20180528, end: 20180529
  6. PREDNISOLONE. [Concomitant]
     Active Substance: PREDNISOLONE
     Route: 042
     Dates: start: 20180528, end: 20180529
  7. VINCRISTINE [Concomitant]
     Active Substance: VINCRISTINE
     Route: 042
     Dates: start: 20180525, end: 20180525
  8. VINCRISTINE [Concomitant]
     Active Substance: VINCRISTINE
     Route: 042
     Dates: start: 20180528, end: 20180529
  9. DOXORUBICIN [Concomitant]
     Active Substance: DOXORUBICIN
     Route: 042
     Dates: start: 20180528, end: 20180529
  10. IBRUTINIB [Suspect]
     Active Substance: IBRUTINIB
     Indication: CHRONIC LYMPHOCYTIC LEUKAEMIA
     Route: 048
     Dates: start: 20161025, end: 20180513
  11. COTRIMAZOL [Concomitant]
     Route: 048
     Dates: start: 20180524
  12. PREDNISONE. [Concomitant]
     Active Substance: PREDNISONE
     Route: 048
     Dates: start: 20180525, end: 20180529

REACTIONS (2)
  - Photosensitivity reaction [Recovered/Resolved]
  - Myocardial infarction [Recovered/Resolved]

NARRATIVE: CASE EVENT DATE: 20180513
